FAERS Safety Report 6674690-7 (Version None)
Quarter: 2010Q2

REPORT INFORMATION
  Report Type: 
  Country: None (occurrence: None)
  Receive Date: 20100409
  Receipt Date: 20100325
  Transmission Date: 20101027
  Serious: Yes (Other)
  Sender: FDA-Public Use
  Company Number: US-ELI_LILLY_AND_COMPANY-US201004000321

PATIENT
  Sex: Male

DRUGS (6)
  1. FORTEO [Suspect]
     Indication: OSTEOPOROSIS
     Dosage: 20 UG, DAILY (1/D)
     Dates: start: 20050101, end: 20060101
  2. FORTEO [Suspect]
     Dosage: 20 UG, DAILY (1/D)
     Dates: start: 20100301, end: 20100324
  3. SEROQUEL [Concomitant]
     Indication: SLEEP DISORDER
  4. AMLODIPINE [Concomitant]
  5. LISINOPRIL [Concomitant]
     Dosage: 30 MG, UNKNOWN
  6. SUBOXONE [Concomitant]
     Indication: PAIN
     Dosage: 8 MG, 3/D

REACTIONS (21)
  - ANXIETY [None]
  - BONE DENSITY ABNORMAL [None]
  - DIZZINESS [None]
  - DRUG DOSE OMISSION [None]
  - ERYTHEMA [None]
  - FACIAL BONES FRACTURE [None]
  - FEELING ABNORMAL [None]
  - FEELING HOT [None]
  - FEMUR FRACTURE [None]
  - FRACTURED SACRUM [None]
  - HEART RATE INCREASED [None]
  - HIP FRACTURE [None]
  - HOT FLUSH [None]
  - HYPERHIDROSIS [None]
  - HYPERSENSITIVITY [None]
  - JAW FRACTURE [None]
  - PALPITATIONS [None]
  - RIB FRACTURE [None]
  - ROAD TRAFFIC ACCIDENT [None]
  - SPINAL FRACTURE [None]
  - VOMITING [None]
